FAERS Safety Report 24265275 (Version 1)
Quarter: 2024Q3

REPORT INFORMATION
  Report Type: Spontaneous
  Country: US (occurrence: None)
  Receive Date: 20240829
  Receipt Date: 20240829
  Transmission Date: 20241016
  Serious: Yes (Hospitalization)
  Sender: Public
  Company Number: None

PATIENT
  Age: 62 Year
  Sex: Female
  Weight: 57.9 kg

DRUGS (1)
  1. PAZOPANIB [Suspect]
     Active Substance: PAZOPANIB
     Dates: end: 20240815

REACTIONS (7)
  - Tachycardia [None]
  - Pyrexia [None]
  - Full blood count decreased [None]
  - Body temperature decreased [None]
  - Neutrophil count decreased [None]
  - Bacteraemia [None]
  - Post procedural complication [None]

NARRATIVE: CASE EVENT DATE: 20240816
